FAERS Safety Report 19509313 (Version 1)
Quarter: 2021Q3

REPORT INFORMATION
  Report Type: Spontaneous
  Country: US (occurrence: US)
  Receive Date: 20210709
  Receipt Date: 20210709
  Transmission Date: 20211014
  Serious: No
  Sender: FDA-Public Use
  Company Number: US-PRINSTON PHARMACEUTICAL INC.-2021PRN00110

PATIENT
  Sex: Female
  Weight: 48.07 kg

DRUGS (11)
  1. FIORICET [Concomitant]
     Active Substance: ACETAMINOPHEN\BUTALBITAL\CAFFEINE
  2. ACYCLOVIR. [Concomitant]
     Active Substance: ACYCLOVIR
     Dosage: UNK
  3. PRAVASTATIN. [Concomitant]
     Active Substance: PRAVASTATIN
     Dosage: UNK, 1X/WEEK
  4. NYSTATIN. [Concomitant]
     Active Substance: NYSTATIN
     Route: 048
  5. CLONAZEPAM. [Suspect]
     Active Substance: CLONAZEPAM
     Indication: ANXIETY
     Dosage: 0.5 MG, 1X/DAY BEFORE BED (WITH ADDITIONAL 0.5 MG IF SHE AWOKE)
     Route: 048
  6. CLONAZEPAM. [Suspect]
     Active Substance: CLONAZEPAM
     Dosage: 0.5 MG, 1X/DAY BEFORE BED (WITH ADDITIONAL 0.5 MG IF SHE AWOKE)
     Route: 048
     Dates: start: 20210303
  7. CLONAZEPAM. [Suspect]
     Active Substance: CLONAZEPAM
     Indication: INSOMNIA
     Dosage: 1 MG, 1X/DAY BEFORE BED
     Route: 048
     Dates: start: 2013
  8. TYLENOL [Concomitant]
     Active Substance: ACETAMINOPHEN
  9. CLONAZEPAM. [Suspect]
     Active Substance: CLONAZEPAM
     Dosage: 0.5 MG, 1X/DAY BEFORE BED (WITH ADDITIONAL 0.5 MG IF SHE AWOKE)
     Route: 048
     Dates: start: 20210118
  10. IBUPROFEN. [Concomitant]
     Active Substance: IBUPROFEN
     Dosage: UNK
  11. VITAMIN D [Concomitant]
     Active Substance: VITAMIN D NOS

REACTIONS (11)
  - Therapeutic response unexpected [Not Recovered/Not Resolved]
  - Palpitations [Unknown]
  - Product quality issue [Not Recovered/Not Resolved]
  - Headache [Not Recovered/Not Resolved]
  - Asthenia [Not Recovered/Not Resolved]
  - Intentional product use issue [Not Recovered/Not Resolved]
  - Wrong technique in product usage process [Not Recovered/Not Resolved]
  - Drug ineffective for unapproved indication [Not Recovered/Not Resolved]
  - Fatigue [Not Recovered/Not Resolved]
  - Middle insomnia [Not Recovered/Not Resolved]
  - Nausea [Not Recovered/Not Resolved]

NARRATIVE: CASE EVENT DATE: 2013
